FAERS Safety Report 4687720-9 (Version None)
Quarter: 2005Q2

REPORT INFORMATION
  Report Type: 
  Country: None (occurrence: None)
  Receive Date: 20050608
  Receipt Date: 20050608
  Transmission Date: 20051028
  Serious: No
  Sender: FDA-Public Use
  Company Number: None

PATIENT
  Age: 83 Year
  Sex: Female
  Weight: 43.3185 kg

DRUGS (14)
  1. HEPARIN [Suspect]
     Indication: THROMBOSIS PROPHYLAXIS
     Dosage: 5000 UNITS SQ Q 8
     Route: 058
     Dates: start: 20050413, end: 20050424
  2. PEPCID [Suspect]
     Dosage: 20 MG PO QD
     Route: 048
     Dates: start: 20050423, end: 20050424
  3. NATRECOR [Suspect]
     Indication: CARDIAC FAILURE CONGESTIVE
     Dosage: 0.01 MCG/KG/MIN
     Dates: start: 20050423, end: 20050424
  4. LASIX [Suspect]
     Indication: CARDIAC FAILURE CONGESTIVE
     Dosage: 40MG PO QD
     Route: 048
     Dates: start: 20050423, end: 20050424
  5. LISINOPRIL [Concomitant]
  6. COREG [Concomitant]
  7. TYLENOL [Concomitant]
  8. FERROUS SULFATE [Concomitant]
  9. ARICEPT [Concomitant]
  10. LIPITOR [Concomitant]
  11. REMERON [Concomitant]
  12. ALBLATROV [Concomitant]
  13. LABETALOL [Concomitant]
  14. HYDRALAZINE [Concomitant]

REACTIONS (3)
  - CARDIAC FAILURE CONGESTIVE [None]
  - CONDITION AGGRAVATED [None]
  - LABORATORY TEST ABNORMAL [None]
